FAERS Safety Report 8567031-1 (Version None)
Quarter: 2012Q3

REPORT INFORMATION
  Report Type: 
  Country: None (occurrence: None)
  Receive Date: 20120803
  Receipt Date: 20111218
  Transmission Date: 20120928
  Serious: No
  Sender: FDA-Public Use
  Company Number: US-ABBOTT-11P-163-0884167-00

PATIENT
  Sex: Female

DRUGS (3)
  1. NIASPAN [Suspect]
     Indication: BLOOD CHOLESTEROL ABNORMAL
     Dosage: 500 MG - AT BEDTIME
     Dates: start: 20111201
  2. NEXIUM [Concomitant]
     Indication: GASTROOESOPHAGEAL REFLUX DISEASE
  3. NEXIUM [Concomitant]
     Dates: start: 20101201

REACTIONS (6)
  - FEELING HOT [None]
  - PALPITATIONS [None]
  - GASTROOESOPHAGEAL REFLUX DISEASE [None]
  - GENERALISED ERYTHEMA [None]
  - FLUSHING [None]
  - COUGH [None]
